FAERS Safety Report 5225068-4 (Version None)
Quarter: 2007Q1

REPORT INFORMATION
  Report Type: 
  Country: None (occurrence: None)
  Receive Date: 20070126
  Receipt Date: 20070111
  Transmission Date: 20070707
  Serious: Yes (Hospitalization)
  Sender: FDA-Public Use
  Company Number: 2007S1000488

PATIENT
  Age: 39 Year
  Sex: Male
  Weight: 82.1011 kg

DRUGS (5)
  1. CLOZAPINE [Suspect]
     Indication: SCHIZOAFFECTIVE DISORDER
     Dosage: 700 MG;AT BEDTIME;ORAL
     Route: 048
     Dates: start: 20050101, end: 20061118
  2. DIVALPROEX SODIUM [Concomitant]
  3. DULOXETINE [Concomitant]
  4. DIPHENHYDRAMINE HCL [Concomitant]
  5. LAMOTRIGINE [Concomitant]

REACTIONS (1)
  - PNEUMONIA ASPIRATION [None]
